FAERS Safety Report 9646260 (Version 1)
Quarter: 2013Q4

REPORT INFORMATION
  Report Type: Spontaneous
  Country: GR (occurrence: GR)
  Receive Date: 20131025
  Receipt Date: 20131025
  Transmission Date: 20140711
  Serious: Yes (Other)
  Sender: FDA-Public Use
  Company Number: GR-MYLANLABS-2013S1023269

PATIENT
  Age: 40 Year
  Sex: Male

DRUGS (2)
  1. PREDNISOLONE [Suspect]
     Indication: MYASTHENIA GRAVIS
     Route: 048
  2. AZATHIOPRINE [Concomitant]
     Indication: MYASTHENIA GRAVIS
     Route: 065

REACTIONS (1)
  - Chorioretinopathy [Recovering/Resolving]
